FAERS Safety Report 4948543-6 (Version None)
Quarter: 2006Q1

REPORT INFORMATION
  Report Type: 
  Country: None (occurrence: None)
  Receive Date: 20060320
  Receipt Date: 20060130
  Transmission Date: 20060701
  Serious: Yes (Hospitalization, Disabling)
  Sender: FDA-Public Use
  Company Number: US-MERCK-0601USA03555

PATIENT
  Age: 62 Year
  Sex: Male
  Weight: 105 kg

DRUGS (2)
  1. VIOXX [Suspect]
     Indication: ARTHRALGIA
     Route: 048
     Dates: start: 19990101, end: 20010101
  2. ASPIRIN [Concomitant]
     Route: 065

REACTIONS (9)
  - AORTIC ANEURYSM [None]
  - ARTERIOSCLEROSIS CORONARY ARTERY [None]
  - CARDIOMEGALY [None]
  - CARDIOVASCULAR DISORDER [None]
  - HYPERTENSION [None]
  - LACUNAR INFARCTION [None]
  - NEPHROLITHIASIS [None]
  - OSTEOARTHRITIS [None]
  - PAIN IN EXTREMITY [None]
